FAERS Safety Report 4323341-5 (Version None)
Quarter: 2004Q1

REPORT INFORMATION
  Report Type: 
  Country: None (occurrence: None)
  Receive Date: 20040323
  Receipt Date: 20040323
  Transmission Date: 20041129
  Serious: Yes (Hospitalization)
  Sender: FDA-Public Use
  Company Number: None

PATIENT
  Age: 77 Year
  Sex: Male
  Weight: 66.1 kg

DRUGS (9)
  1. FUROSEMIDE [Suspect]
     Dosage: 20 MG BID ORAL
     Route: 048
     Dates: start: 20030627, end: 20030702
  2. CITALOPRAM HYDROBROMIDE [Concomitant]
  3. MULTI-VITAMIN [Concomitant]
  4. ISOSORBIDE DINITRATE [Concomitant]
  5. ALLOPURINOL [Concomitant]
  6. AMLODIPINE BESYLATE [Concomitant]
  7. HYDROCHLOROTHIAZIDE [Concomitant]
  8. ASPIRIN [Concomitant]
  9. ACETAMINOPHEN [Concomitant]

REACTIONS (1)
  - THROMBOCYTOPENIA [None]
